FAERS Safety Report 14626918 (Version 1)
Quarter: 2018Q1

REPORT INFORMATION
  Report Type: Spontaneous
  Country: JP (occurrence: JP)
  Receive Date: 20180312
  Receipt Date: 20180312
  Transmission Date: 20180509
  Serious: Yes (Other)
  Sender: FDA-Public Use
  Company Number: JP-TEVA-2018-JP-866347

PATIENT
  Age: 50 Year
  Sex: Male
  Weight: 45.5 kg

DRUGS (4)
  1. FILGRASTIM [Suspect]
     Active Substance: FILGRASTIM
     Indication: HAEMATOPOIETIC STEM CELL MOBILISATION
     Dosage: 600 MICROGRAM DAILY;
     Route: 058
  2. BORTEZOMIB [Suspect]
     Active Substance: BORTEZOMIB
     Indication: PLASMA CELL MYELOMA
     Dosage: 1.3 MG/M2 DAILY; 1.3 MG/M2/WEEK. THREE CYCLES.
     Route: 065
  3. DEXAMETHASONE. [Suspect]
     Active Substance: DEXAMETHASONE
     Indication: PLASMA CELL MYELOMA
     Dosage: 5.7143 MILLIGRAM DAILY; 40 MG/WEEK. THREE CYCLES.
     Route: 065
  4. MELPHALAN. [Suspect]
     Active Substance: MELPHALAN
     Dosage: 140 MG/M2
     Route: 065

REACTIONS (7)
  - Urticaria [Recovered/Resolved]
  - Splenic haemorrhage [Not Recovered/Not Resolved]
  - Diarrhoea [Unknown]
  - Splenic haematoma [Not Recovered/Not Resolved]
  - Anaemia [Unknown]
  - Syncope [Unknown]
  - Splenic rupture [Not Recovered/Not Resolved]
